FAERS Safety Report 8448010-1 (Version None)
Quarter: 2012Q2

REPORT INFORMATION
  Report Type: 
  Country: None (occurrence: None)
  Receive Date: 20120619
  Receipt Date: 20120613
  Transmission Date: 20120825
  Serious: Yes (Hospitalization)
  Sender: FDA-Public Use
  Company Number: US-AMGEN-USASP2011028182

PATIENT
  Age: 21 Year
  Sex: Female
  Weight: 66.2 kg

DRUGS (1)
  1. ENBREL [Suspect]
     Indication: RHEUMATOID ARTHRITIS
     Dosage: 50 MG, QWK
     Route: 058
     Dates: start: 20110217

REACTIONS (6)
  - CELLULITIS [None]
  - HEADACHE [None]
  - INFECTION [None]
  - OROPHARYNGEAL PAIN [None]
  - EAR PAIN [None]
  - COUGH [None]
